FAERS Safety Report 7797881-0 (Version None)
Quarter: 2011Q4

REPORT INFORMATION
  Report Type: 
  Country: None (occurrence: None)
  Receive Date: 20111005
  Receipt Date: 20110929
  Transmission Date: 20120403
  Serious: Yes (Death, Hospitalization)
  Sender: FDA-Public Use
  Company Number: JP-MERCK-1107USA00298

PATIENT
  Age: 71 Year
  Sex: Male

DRUGS (8)
  1. JANUVIA [Suspect]
     Indication: TYPE 2 DIABETES MELLITUS
     Route: 048
     Dates: start: 20110309
  2. WARFARIN [Concomitant]
     Route: 065
  3. REZALTAS [Concomitant]
     Route: 065
     Dates: start: 20110126
  4. MEXITIL [Concomitant]
     Route: 065
     Dates: start: 20070826
  5. BISOPROLOL FUMARATE [Concomitant]
     Route: 065
     Dates: start: 20080802
  6. PRAVASTATIN SODIUM [Concomitant]
     Route: 065
     Dates: start: 20061207
  7. AMIODARONE HCL [Suspect]
     Indication: VENTRICULAR TACHYCARDIA
     Route: 048
     Dates: start: 20080815, end: 20110420
  8. AMARYL [Concomitant]
     Indication: TYPE 2 DIABETES MELLITUS
     Route: 065
     Dates: start: 20020815

REACTIONS (1)
  - INTERSTITIAL LUNG DISEASE [None]
